FAERS Safety Report 9144814 (Version 1)
Quarter: 2013Q1

REPORT INFORMATION
  Report Type: Spontaneous
  Country: US (occurrence: US)
  Receive Date: 20130307
  Receipt Date: 20130307
  Transmission Date: 20140127
  Serious: Yes (Other)
  Sender: FDA-Public Use
  Company Number: US-AMGEN-USASP2013014677

PATIENT
  Age: 44 Year
  Sex: Female

DRUGS (4)
  1. ENBREL [Suspect]
     Indication: PSORIASIS
     Dosage: 50 MG, UNK
  2. ENBREL [Suspect]
     Indication: PSORIATIC ARTHROPATHY
  3. HUMIRA [Concomitant]
     Dosage: 40 MG, EVERY TWO WEEKS
  4. METHOTREXATE [Concomitant]
     Dosage: UNK

REACTIONS (13)
  - Lymphoedema [Unknown]
  - Thrombosis [Unknown]
  - Cellulitis [Unknown]
  - Local swelling [Unknown]
  - Arthralgia [Unknown]
  - Drug effect incomplete [Unknown]
  - Musculoskeletal stiffness [Unknown]
  - Musculoskeletal discomfort [Unknown]
  - Joint dislocation [Unknown]
  - Arthropathy [Unknown]
  - Back pain [Unknown]
  - Joint swelling [Unknown]
  - Superinfection [Unknown]
